FAERS Safety Report 25099410 (Version 1)
Quarter: 2025Q1

REPORT INFORMATION
  Report Type: Spontaneous
  Country: US (occurrence: US)
  Receive Date: 20250320
  Receipt Date: 20250320
  Transmission Date: 20250408
  Serious: Yes (Other)
  Sender: CROWN LABORATORIES, INC.
  Company Number: US-Crown Laboratories, Inc.-2173331

PATIENT
  Sex: Female

DRUGS (1)
  1. ZEASORB AF [Suspect]
     Active Substance: MICONAZOLE NITRATE
     Dates: start: 20250217

REACTIONS (1)
  - Cough [Unknown]

NARRATIVE: CASE EVENT DATE: 20250217
